FAERS Safety Report 12297801 (Version 2)
Quarter: 2018Q4

REPORT INFORMATION
  Report Type: Spontaneous
  Country: RO (occurrence: RO)
  Receive Date: 20160422
  Receipt Date: 20181126
  Transmission Date: 20190204
  Serious: Yes (Hospitalization)
  Sender: FDA-Public Use
  Company Number: RO-ASTRAZENECA-2016SE41660

PATIENT
  Age: 71 Year
  Sex: Female

DRUGS (1)
  1. CANDESARTAN. [Suspect]
     Active Substance: CANDESARTAN
     Route: 048

REACTIONS (3)
  - Acute kidney injury [Recovered/Resolved]
  - Vasculitis [Unknown]
  - Tubulointerstitial nephritis [Unknown]
